FAERS Safety Report 9198836 (Version 1)
Quarter: 2013Q1

REPORT INFORMATION
  Report Type: Spontaneous
  Country: MY (occurrence: MY)
  Receive Date: 20130329
  Receipt Date: 20130329
  Transmission Date: 20140127
  Serious: Yes (Disabling)
  Sender: FDA-Public Use
  Company Number: MY-MERCK-1303MYS012369

PATIENT
  Age: 29 Year
  Sex: Female

DRUGS (5)
  1. SAPHRIS [Suspect]
     Indication: BIPOLAR II DISORDER
     Dosage: 5 MG, HS
     Route: 060
     Dates: start: 20111209
  2. SAPHRIS [Suspect]
     Dosage: 10 MG, UNK
     Route: 060
     Dates: start: 20120913
  3. LORAZEPAM [Concomitant]
     Dosage: 1 MG X 2
  4. VALPROATE SODIUM [Concomitant]
     Dosage: 500 MG, HS
  5. FLUVOXAMINE MALEATE [Concomitant]
     Dosage: 100 MG, HS

REACTIONS (1)
  - Panic attack [Unknown]
